FAERS Safety Report 12698350 (Version 1)
Quarter: 2016Q3

REPORT INFORMATION
  Report Type: Spontaneous
  Country: US (occurrence: US)
  Receive Date: 20160830
  Receipt Date: 20160830
  Transmission Date: 20161109
  Serious: No
  Sender: FDA-Public Use
  Company Number: US-JNJFOC-20150918148

PATIENT
  Age: 17 Year
  Sex: Male

DRUGS (5)
  1. RISPERDAL [Suspect]
     Active Substance: RISPERIDONE
     Indication: SEIZURE
     Route: 048
     Dates: end: 2015
  2. RISPERIDONE. [Suspect]
     Active Substance: RISPERIDONE
     Indication: PRODUCT USED FOR UNKNOWN INDICATION
     Route: 048
  3. RISPERDAL [Suspect]
     Active Substance: RISPERIDONE
     Indication: SEIZURE
     Dosage: 2MG, 4MG
     Route: 048
     Dates: start: 20041013
  4. RISPERDAL [Suspect]
     Active Substance: RISPERIDONE
     Indication: SEIZURE
     Dosage: 2MG, 4MG
     Route: 048
     Dates: start: 20000303, end: 20080109
  5. RISPERDAL [Suspect]
     Active Substance: RISPERIDONE
     Indication: SEIZURE
     Dosage: 2MG, 4MG
     Route: 048
     Dates: start: 20080204, end: 20150406

REACTIONS (4)
  - Product use issue [Unknown]
  - Gynaecomastia [Unknown]
  - Abnormal weight gain [Unknown]
  - Off label use [Unknown]

NARRATIVE: CASE EVENT DATE: 20000303
